FAERS Safety Report 18755562 (Version 1)
Quarter: 2021Q1

REPORT INFORMATION
  Report Type: Spontaneous
  Country: US (occurrence: US)
  Receive Date: 20210118
  Receipt Date: 20210118
  Transmission Date: 20210419
  Serious: Yes (Other)
  Sender: FDA-Public Use
  Company Number: None

PATIENT
  Age: 73 Year
  Sex: Male
  Weight: 103 kg

DRUGS (2)
  1. REDMESIVIR [Concomitant]
     Dates: start: 20201211, end: 20201215
  2. REMDESIVIR. [Suspect]
     Active Substance: REMDESIVIR
     Indication: SARS-COV-2 TEST POSITIVE
     Route: 042
     Dates: start: 20201211, end: 20201215

REACTIONS (1)
  - Angioedema [None]

NARRATIVE: CASE EVENT DATE: 20201215
